FAERS Safety Report 5213700-0 (Version None)
Quarter: 2007Q1

REPORT INFORMATION
  Report Type: 
  Country: None (occurrence: None)
  Receive Date: 20070119
  Receipt Date: 20070108
  Transmission Date: 20070707
  Serious: No
  Sender: FDA-Public Use
  Company Number: US-PFIZER INC-2007003250

PATIENT
  Sex: Female

DRUGS (5)
  1. PROVERA [Suspect]
     Indication: HORMONE REPLACEMENT THERAPY
     Route: 048
     Dates: start: 19890101, end: 20020101
  2. MEDROXYPROGESTERONE ACETATE TABLET [Suspect]
     Indication: HORMONE REPLACEMENT THERAPY
     Route: 048
     Dates: start: 19890101, end: 20020101
  3. PREMARIN [Suspect]
     Indication: HORMONE REPLACEMENT THERAPY
     Dates: start: 19890101, end: 20020101
  4. PREMPRO [Suspect]
     Indication: HORMONE REPLACEMENT THERAPY
     Dates: start: 19890101, end: 20020101
  5. ESTRADIOL [Suspect]
     Indication: HORMONE REPLACEMENT THERAPY
     Dates: start: 19890101, end: 20020101

REACTIONS (1)
  - BREAST CANCER FEMALE [None]
